FAERS Safety Report 7674588-1 (Version None)
Quarter: 2011Q3

REPORT INFORMATION
  Report Type: 
  Country: None (occurrence: None)
  Receive Date: 20110810
  Receipt Date: 20060324
  Transmission Date: 20111222
  Serious: Yes (Death)
  Sender: FDA-Public Use
  Company Number: US-BAXTER-2011BH025616

PATIENT
  Age: 12 Day
  Sex: Female

DRUGS (5)
  1. PREDNISONE [Concomitant]
     Indication: SYSTEMIC LUPUS ERYTHEMATOSUS
     Route: 064
  2. ENALAPRIL MALEATE [Concomitant]
     Indication: HYPERTENSION
     Route: 064
  3. CYCLOPHOSPHAMIDE [Suspect]
     Indication: SYSTEMIC LUPUS ERYTHEMATOSUS
     Route: 064
  4. HYDROXYCHLOROQUINE [Concomitant]
     Indication: PRODUCT USED FOR UNKNOWN INDICATION
     Route: 064
  5. AMLODIPINE [Concomitant]
     Indication: HYPERTENSION
     Route: 064

REACTIONS (19)
  - CONGENITAL HYDROCEPHALUS [None]
  - ANOMALY OF EXTERNAL EAR CONGENITAL [None]
  - LIMB MALFORMATION [None]
  - MULTIPLE CONGENITAL ABNORMALITIES [None]
  - CONGENITAL NOSE MALFORMATION [None]
  - MATERNAL EXPOSURE DURING PREGNANCY [None]
  - CONGENITAL ORAL MALFORMATION [None]
  - NEONATAL RESPIRATORY DISTRESS SYNDROME [None]
  - PREMATURE BABY [None]
  - CONGENITAL CEREBRAL CYST [None]
  - SPINE MALFORMATION [None]
  - CORNEAL OPACITY CONGENITAL [None]
  - MATERNAL DRUGS AFFECTING FOETUS [None]
  - LOW SET EARS [None]
  - CAESAREAN SECTION [None]
  - HYDROCEPHALUS [None]
  - HYPOTELORISM OF ORBIT [None]
  - CONGENITAL CENTRAL NERVOUS SYSTEM ANOMALY [None]
  - DYSMORPHISM [None]
